FAERS Safety Report 5410508-8 (Version None)
Quarter: 2007Q3

REPORT INFORMATION
  Report Type: 
  Country: None (occurrence: None)
  Receive Date: 20070810
  Receipt Date: 20070130
  Transmission Date: 20080115
  Serious: No
  Sender: FDA-Public Use
  Company Number: A0637657A

PATIENT
  Age: 25 Year
  Sex: Female

DRUGS (3)
  1. PAXIL [Suspect]
     Indication: ANXIETY DISORDER
     Dosage: 25MG PER DAY
     Route: 048
     Dates: start: 20061101, end: 20070120
  2. PERCOCET [Concomitant]
  3. VICODIN [Concomitant]

REACTIONS (1)
  - MIGRAINE [None]
